FAERS Safety Report 10619363 (Version 1)
Quarter: 2014Q4

REPORT INFORMATION
  Report Type: Spontaneous
  Country: US (occurrence: None)
  Receive Date: 20141126
  Receipt Date: 20141126
  Transmission Date: 20150529
  Serious: Yes (Hospitalization)
  Sender: FDA-Public Use
  Company Number: 1-1114-14

PATIENT
  Age: 2 Year

DRUGS (1)
  1. FLUOCINOLONE ACETONIDE 0.01% [Suspect]
     Active Substance: FLUOCINOLONE ACETONIDE
     Route: 061

REACTIONS (1)
  - Unevaluable event [None]

NARRATIVE: CASE EVENT DATE: 20141117
